FAERS Safety Report 4285562-X (Version None)
Quarter: 2004Q1

REPORT INFORMATION
  Report Type: 
  Country: None (occurrence: None)
  Receive Date: 20040204
  Receipt Date: 20040121
  Transmission Date: 20041129
  Serious: Yes (Death)
  Sender: FDA-Public Use
  Company Number: US-JNJFOC-20031201865

PATIENT
  Age: 84 Year
  Sex: Female
  Weight: 51.2565 kg

DRUGS (1)
  1. DITROPAN [Suspect]
     Indication: HYPERTONIC BLADDER
     Dosage: ORAL
     Route: 048

REACTIONS (1)
  - DEATH [None]
